FAERS Safety Report 10748795 (Version 2)
Quarter: 2016Q4

REPORT INFORMATION
  Report Type: Report from Study
  Country: CA (occurrence: CA)
  Receive Date: 20150129
  Receipt Date: 20161228
  Transmission Date: 20170206
  Serious: Yes (Other)
  Sender: FDA-Public Use
  Company Number: CA-UCBSA-2015002257

PATIENT
  Sex: Male
  Weight: 90 kg

DRUGS (8)
  1. VERAPAMIL [Concomitant]
     Active Substance: VERAPAMIL HYDROCHLORIDE
     Indication: HYPERTENSION
     Dosage: 240 MG, ONCE DAILY (QD)
     Route: 048
  2. CERTOLIZUMAB PEGOL PSA [Suspect]
     Active Substance: CERTOLIZUMAB PEGOL
     Dosage: 200 MG, EV 2 WEEKS(QOW)
     Route: 058
     Dates: start: 20130619
  3. MTX [Concomitant]
     Active Substance: METHOTREXATE SODIUM
     Indication: PROSTATIC SPECIFIC ANTIGEN
     Dosage: 15 MG, WEEKLY (QW)
     Route: 048
     Dates: start: 201311
  4. PENNSAID [Concomitant]
     Active Substance: DICLOFENAC SODIUM
     Indication: PROSTATIC SPECIFIC ANTIGEN
     Dosage: UNK, 2X/DAY (BID) VIA PULL
  5. NEXIUM [Concomitant]
     Active Substance: ESOMEPRAZOLE MAGNESIUM
     Indication: PROPHYLAXIS
     Dosage: 40 MG, ONCE DAILY (QD)
     Route: 048
  6. LIPITOR [Concomitant]
     Active Substance: ATORVASTATIN CALCIUM
     Indication: CARDIAC DISORDER
     Dosage: 10 MG, ONCE DAILY (QD)
     Route: 048
  7. ACCUPRIL [Concomitant]
     Active Substance: QUINAPRIL HYDROCHLORIDE
     Indication: HYPERTENSION
     Dosage: 20 MG, ONCE DAILY (QD)
     Route: 048
  8. CERTOLIZUMAB PEGOL PSA [Suspect]
     Active Substance: CERTOLIZUMAB PEGOL
     Indication: PSORIATIC ARTHROPATHY
     Dosage: 400 MG, EV 2 WEEKS(QOW)
     Route: 058
     Dates: start: 20130508, end: 20130605

REACTIONS (1)
  - Herpes zoster [Recovered/Resolved]
